FAERS Safety Report 15321905 (Version 1)
Quarter: 2018Q3

REPORT INFORMATION
  Report Type: Report from Study
  Country: US (occurrence: US)
  Receive Date: 20180827
  Receipt Date: 20180827
  Transmission Date: 20181010
  Serious: Yes (Hospitalization)
  Sender: FDA-Public Use
  Company Number: US-TEVA-2018-US-947168

PATIENT

DRUGS (1)
  1. COPAXONE [Suspect]
     Active Substance: GLATIRAMER ACETATE
     Indication: MULTIPLE SCLEROSIS
     Route: 058
     Dates: start: 20180413, end: 20180601

REACTIONS (5)
  - Multiple sclerosis relapse [Unknown]
  - Optic neuritis [Unknown]
  - Vertigo [Unknown]
  - Vomiting [Unknown]
  - Gait inability [Unknown]
